FAERS Safety Report 10145740 (Version 3)
Quarter: 2015Q2

REPORT INFORMATION
  Report Type: Spontaneous
  Country: US (occurrence: None)
  Receive Date: 20140429
  Receipt Date: 20150428
  Transmission Date: 20150821
  Serious: Yes (Other)
  Sender: FDA-Public Use
  Company Number: 2014P1003620

PATIENT
  Age: 83 Year
  Sex: Female

DRUGS (2)
  1. DIGOXIN (DIGOXIN) UNKNOWN [Suspect]
     Active Substance: DIGOXIN
     Dates: start: 2001
  2. CARVEDILOL TABLETS [Suspect]
     Active Substance: CARVEDILOL
     Dates: start: 20080304

REACTIONS (10)
  - Cardiac failure congestive [None]
  - Visual impairment [None]
  - Malaise [None]
  - Emotional distress [None]
  - Fall [None]
  - Stress [None]
  - Blindness [None]
  - Myocardial infarction [None]
  - Rotator cuff syndrome [None]
  - Cardiac disorder [None]

NARRATIVE: CASE EVENT DATE: 2003
